FAERS Safety Report 15775368 (Version 1)
Quarter: 2018Q4

REPORT INFORMATION
  Report Type: Spontaneous
  Country: US (occurrence: US)
  Receive Date: 20181231
  Receipt Date: 20181231
  Transmission Date: 20190205
  Serious: No
  Sender: FDA-Public Use
  Company Number: US-PHARMING-PHAUS2018000842

PATIENT

DRUGS (8)
  1. STERILE WATER [Concomitant]
     Active Substance: WATER
  2. EPINEPHRINE. [Concomitant]
     Active Substance: EPINEPHRINE
  3. NARCAN [Concomitant]
     Active Substance: NALOXONE HYDROCHLORIDE
  4. RUCONEST [Suspect]
     Active Substance: HUMAN C1-ESTERASE INHIBITOR
     Indication: HEREDITARY ANGIOEDEMA
     Dosage: 4200 IU, AS NEEDED
     Route: 042
     Dates: start: 20180709
  5. LEVORPHANOL [Concomitant]
     Active Substance: LEVORPHANOL
  6. SODIUM CHLORIDE. [Concomitant]
     Active Substance: SODIUM CHLORIDE
  7. HEPARIN [Concomitant]
     Active Substance: HEPARIN SODIUM
  8. DIAZEPAM. [Concomitant]
     Active Substance: DIAZEPAM

REACTIONS (3)
  - Epistaxis [Unknown]
  - Infusion related reaction [Unknown]
  - Dehydration [Unknown]

NARRATIVE: CASE EVENT DATE: 2018
